FAERS Safety Report 7440266-7 (Version None)
Quarter: 2011Q2

REPORT INFORMATION
  Report Type: 
  Country: None (occurrence: None)
  Receive Date: 20110427
  Receipt Date: 20110422
  Transmission Date: 20111010
  Serious: Yes (Life-Threatening, Hospitalization)
  Sender: FDA-Public Use
  Company Number: FR-GENZYME-201011907GPV

PATIENT
  Sex: Male
  Weight: 101 kg

DRUGS (18)
  1. FLUDARA [Suspect]
     Indication: BONE MARROW TRANSPLANT
     Dosage: UNK, QD
     Route: 042
     Dates: start: 20090101, end: 20090104
  2. SOLU-MEDROL [Concomitant]
     Indication: BONE MARROW TRANSPLANT
     Dosage: 200 MG, QD
     Route: 042
     Dates: start: 20100102, end: 20100105
  3. CANCIDAS [Concomitant]
     Indication: PROPHYLAXIS
     Dosage: 50 MG, QD
     Route: 042
     Dates: start: 20100101
  4. OFLOCET [Concomitant]
     Indication: PROPHYLAXIS
     Dosage: 400 MG, QD
     Route: 048
     Dates: start: 20091231
  5. FLUDARA [Suspect]
     Indication: APLASTIC ANAEMIA
     Dosage: 60 MG, QD
     Route: 042
     Dates: start: 20100101, end: 20100106
  6. ZOPHREN [Concomitant]
     Indication: PROPHYLAXIS
     Dosage: 24 MG, QD
     Route: 042
     Dates: start: 20091231, end: 20100106
  7. RIVATRIL [Concomitant]
     Indication: PROPHYLAXIS
     Dosage: 2 MG, QD
     Route: 042
     Dates: start: 20091231
  8. CYCLOPHOSPHAMIDE [Concomitant]
     Indication: BONE MARROW CONDITIONING REGIMEN
     Dosage: 600 MG, QD
     Route: 065
     Dates: start: 20100101, end: 20100106
  9. RAMIPRIL [Concomitant]
     Indication: HYPERTENSION
     Dosage: 2.5 MG, QD
     Route: 048
     Dates: start: 20100104
  10. NEORAL [Suspect]
     Indication: APLASTIC ANAEMIA
     Dosage: 450 MG QD
     Route: 048
     Dates: start: 20090219, end: 20091124
  11. HEPARIN [Concomitant]
     Indication: PROPHYLAXIS
     Dosage: 10000 U, QD
     Route: 042
     Dates: start: 20091231
  12. ZELITREX [Concomitant]
     Indication: PROPHYLAXIS
     Dosage: 1000 MG, QD
     Route: 048
     Dates: start: 20091231
  13. CLAMOXYL [Concomitant]
     Indication: PROPHYLAXIS
     Dosage: 500 MG, QD
     Route: 048
     Dates: start: 20091231
  14. THYMOGLOBULIN [Suspect]
     Dosage: 15 VIALS
     Route: 042
     Dates: start: 20100103, end: 20100104
  15. CYCLOPHOSPHAMIDE [Concomitant]
     Indication: APLASTIC ANAEMIA
  16. INIPOMP [Concomitant]
     Indication: PROPHYLAXIS
     Dosage: 20 MG, QD
     Route: 048
     Dates: start: 20091231
  17. THYMOGLOBULIN [Suspect]
     Indication: APLASTIC ANAEMIA
     Dosage: 14 VIALS
     Route: 042
     Dates: start: 20090219, end: 20090223
  18. CYCLOSPORINE [Concomitant]
     Indication: PROPHYLAXIS
     Dosage: 100 MG, QD
     Route: 042
     Dates: start: 20100101

REACTIONS (2)
  - NO THERAPEUTIC RESPONSE [None]
  - APLASTIC ANAEMIA [None]
